FAERS Safety Report 16660846 (Version 2)
Quarter: 2019Q3

REPORT INFORMATION
  Report Type: Report from Study
  Country: US (occurrence: US)
  Receive Date: 20190802
  Receipt Date: 20190826
  Transmission Date: 20191004
  Serious: Yes (Hospitalization)
  Sender: FDA-Public Use
  Company Number: US-EMD SERONO-E2B_90069775

PATIENT
  Age: 85 Year
  Sex: Male
  Weight: 90 kg

DRUGS (3)
  1. LEUPROLIDE ACETATE. [Concomitant]
     Active Substance: LEUPROLIDE ACETATE
     Indication: PROSTATE CANCER
     Dosage: 22.5 MG, Q 3 MONTHS
     Route: 030
     Dates: start: 20171215
  2. DENOSUMAB [Concomitant]
     Active Substance: DENOSUMAB
     Indication: METASTASES TO BONE
     Dosage: 120 MG, Q 6 WEEKS
     Route: 058
     Dates: start: 20190104
  3. AVELUMAB [Suspect]
     Active Substance: AVELUMAB
     Indication: PROSTATE CANCER
     Dosage: 10 MG/KG, Q 2 WEEKS
     Route: 042
     Dates: start: 20190723, end: 20190723

REACTIONS (1)
  - Syncope [Recovered/Resolved with Sequelae]

NARRATIVE: CASE EVENT DATE: 20190723
